FAERS Safety Report 5742315-0 (Version None)
Quarter: 2008Q2

REPORT INFORMATION
  Report Type: 
  Country: None (occurrence: None)
  Receive Date: 20080519
  Receipt Date: 20080512
  Transmission Date: 20081010
  Serious: Yes (Life-Threatening, Other)
  Sender: FDA-Public Use
  Company Number: US-BAYER-200816474NA

PATIENT
  Sex: Female

DRUGS (3)
  1. NIMOTOP [Suspect]
     Indication: DRUG USE FOR UNKNOWN INDICATION
     Route: 013
  2. NIMOTOP [Suspect]
     Route: 060
  3. OXYGEN [Concomitant]
     Route: 055

REACTIONS (6)
  - ADVERSE EVENT [None]
  - AMNESIA [None]
  - BLOOD PRESSURE ABNORMAL [None]
  - DIABETES INSIPIDUS [None]
  - NO ADVERSE EVENT [None]
  - RESPIRATORY ARREST [None]
